FAERS Safety Report 7178503-9 (Version None)
Quarter: 2010Q4

REPORT INFORMATION
  Report Type: 
  Country: None (occurrence: None)
  Receive Date: 20101220
  Receipt Date: 20101103
  Transmission Date: 20110411
  Serious: Yes (Hospitalization, Other)
  Sender: FDA-Public Use
  Company Number: GB-AMGEN-GBRCT2010000113

PATIENT

DRUGS (10)
  1. ETANERCEPT [Suspect]
     Indication: RHEUMATOID ARTHRITIS
     Dosage: 25 MG, 2 TIMES/WK
     Route: 058
     Dates: start: 20040615, end: 20081015
  2. METHOTREXATE [Concomitant]
     Dosage: UNKNOWN
     Dates: start: 20070904
  3. CO-TENIDONE [Concomitant]
     Dosage: UNKNOWN
  4. VOLTAREN [Concomitant]
     Dosage: UNKNOWN
  5. LAXATIVES [Concomitant]
     Dosage: UNKNOWN
  6. LORATADINE [Concomitant]
     Dosage: UNKNOWN
  7. SENNA [Concomitant]
     Dosage: UNKNOWN
  8. TYLEX [Concomitant]
     Dosage: UNKNOWN
  9. BACLOFEN [Concomitant]
     Dosage: UNKNOWN
  10. DOCUSATE SODIUM [Concomitant]
     Dosage: UNKNOWN

REACTIONS (1)
  - ENDOMETRIAL CANCER STAGE I [None]
